FAERS Safety Report 6503965-7 (Version None)
Quarter: 2009Q4

REPORT INFORMATION
  Report Type: 
  Country: None (occurrence: None)
  Receive Date: 20091217
  Receipt Date: 20091214
  Transmission Date: 20100525
  Serious: Yes (Death)
  Sender: FDA-Public Use
  Company Number: JP-ELI_LILLY_AND_COMPANY-JP200911006716

PATIENT
  Sex: Male
  Weight: 51 kg

DRUGS (13)
  1. GEMZAR [Suspect]
     Indication: BILE DUCT CANCER STAGE IV
     Dosage: 800 MG, OTHER
     Route: 042
     Dates: start: 20091002, end: 20091110
  2. RINDERON /00008501/ [Concomitant]
     Indication: PAIN MANAGEMENT
     Dosage: 1 MG, 2/D
     Route: 048
     Dates: end: 20091101
  3. MERISLON [Concomitant]
     Indication: DIZZINESS
     Dosage: 6 MG, 3/D
     Route: 048
     Dates: end: 20091101
  4. PRIMPERAN /00041901/ [Concomitant]
     Indication: NAUSEA
     Dosage: 5 MG, 3/D
     Route: 048
     Dates: end: 20091101
  5. ASPIRIN [Concomitant]
     Indication: CEREBRAL INFARCTION
     Dosage: 100 MG, DAILY (1/D)
     Route: 048
     Dates: end: 20091101
  6. MUCOSTA [Concomitant]
     Indication: GASTRITIS
     Dosage: 1 D/F, DAILY (1/D)
     Route: 048
     Dates: end: 20091101
  7. TAKEPRON [Concomitant]
     Indication: GASTRIC ULCER
     Dosage: 15 MG, DAILY (1/D)
     Route: 048
     Dates: end: 20091101
  8. HYPEN [Concomitant]
     Indication: PAIN MANAGEMENT
     Dosage: 200 MG, 2/D
     Route: 048
     Dates: end: 20091101
  9. DEPAS [Concomitant]
     Indication: INSOMNIA
     Dosage: 1 MG, 2/D
     Route: 048
     Dates: end: 20091101
  10. MAGMITT [Concomitant]
     Indication: CONSTIPATION
     Dosage: 660 MG, 3/D
     Route: 048
     Dates: end: 20091101
  11. ASVERIN [Concomitant]
     Indication: COUGH
     Dosage: 0.4 G, AS NEEDED
     Route: 048
     Dates: start: 20091003, end: 20091101
  12. MEDICON [Concomitant]
     Indication: COUGH
     Dosage: 0.2 G, AS NEEDED
     Route: 048
     Dates: start: 20091003, end: 20091101
  13. HUSTAGIN [Concomitant]
     Indication: COUGH
     Dosage: 0.4 G, AS NEEDED
     Route: 048
     Dates: start: 20091003, end: 20091101

REACTIONS (2)
  - INTERSTITIAL LUNG DISEASE [None]
  - PLATELET COUNT DECREASED [None]
